FAERS Safety Report 9819779 (Version 2)
Quarter: 2014Q1

REPORT INFORMATION
  Report Type: Report from Study
  Country: US (occurrence: US)
  Receive Date: 20140116
  Receipt Date: 20140118
  Transmission Date: 20141002
  Serious: Yes (Other)
  Sender: FDA-Public Use
  Company Number: US-ROCHE-1334482

PATIENT
  Age: 78 Year
  Sex: Female

DRUGS (4)
  1. LUCENTIS [Suspect]
     Indication: MACULAR DEGENERATION
     Dosage: LEFT EYE
     Route: 065
     Dates: start: 201301
  2. LOSARTAN [Concomitant]
  3. PLAVIX [Concomitant]
  4. PRAVASTATIN [Concomitant]

REACTIONS (2)
  - Transient ischaemic attack [Unknown]
  - Anxiety [Unknown]
